FAERS Safety Report 5097756-4 (Version None)
Quarter: 2006Q3

REPORT INFORMATION
  Report Type: 
  Country: None (occurrence: None)
  Receive Date: 20060824
  Receipt Date: 20060718
  Transmission Date: 20061208
  Serious: Yes (Death, Hospitalization)
  Sender: FDA-Public Use
  Company Number: WAES 0607USA04823

PATIENT
  Age: 56 Year
  Sex: Male

DRUGS (1)
  1. DECADRON [Suspect]
     Indication: IMMUNOSUPPRESSION
     Dosage: 12 MG/DAILY
     Route: 048

REACTIONS (2)
  - LABORATORY TEST ABNORMAL [None]
  - PNEUMOCYSTIS JIROVECI PNEUMONIA [None]
